FAERS Safety Report 9432338 (Version 2)
Quarter: 2013Q4

REPORT INFORMATION
  Report Type: Report from Study
  Country: CN (occurrence: CN)
  Receive Date: 20130731
  Receipt Date: 20131226
  Transmission Date: 20140711
  Serious: Yes (Other)
  Sender: FDA-Public Use
  Company Number: CN-ROCHE-1253632

PATIENT
  Sex: Female

DRUGS (7)
  1. CELLCEPT [Suspect]
     Indication: RENAL TRANSPLANT
     Route: 048
     Dates: start: 20090619, end: 201305
  2. CELLCEPT [Suspect]
     Route: 048
     Dates: start: 201305
  3. TACROLIMUS HYDRATE [Concomitant]
     Indication: RENAL TRANSPLANT
     Route: 048
     Dates: start: 20090619, end: 201305
  4. TACROLIMUS HYDRATE [Concomitant]
     Route: 048
     Dates: start: 201305
  5. PREDNISONE [Concomitant]
     Indication: RENAL TRANSPLANT
     Route: 048
     Dates: start: 20090619, end: 2010
  6. PREDNISONE [Concomitant]
     Route: 048
     Dates: start: 2010, end: 201305
  7. PREDNISONE [Concomitant]
     Route: 048
     Dates: start: 201305

REACTIONS (9)
  - Renal cyst [Unknown]
  - Renal arteriosclerosis [Unknown]
  - Complications of transplanted kidney [Unknown]
  - Blood creatinine increased [Unknown]
  - Blood cholesterol increased [Unknown]
  - High density lipoprotein increased [Unknown]
  - Low density lipoprotein decreased [Unknown]
  - High density lipoprotein increased [Unknown]
  - Arteriosclerosis [Unknown]
